FAERS Safety Report 7993884-1 (Version None)
Quarter: 2011Q4

REPORT INFORMATION
  Report Type: 
  Country: None (occurrence: None)
  Receive Date: 20111220
  Receipt Date: 20111213
  Transmission Date: 20120403
  Serious: Yes (Other)
  Sender: FDA-Public Use
  Company Number: US-SP-2011-12306

PATIENT
  Sex: Female

DRUGS (1)
  1. TUBERSOL [Suspect]
     Indication: IMMUNISATION
     Route: 023
     Dates: start: 20111001, end: 20111001

REACTIONS (4)
  - CELLULITIS [None]
  - INFLAMMATION [None]
  - PERIPHERAL COLDNESS [None]
  - HYPOAESTHESIA [None]
